FAERS Safety Report 5755049-3 (Version None)
Quarter: 2008Q2

REPORT INFORMATION
  Report Type: 
  Country: None (occurrence: None)
  Receive Date: 20080602
  Receipt Date: 20071204
  Transmission Date: 20081010
  Serious: No
  Sender: FDA-Public Use
  Company Number: A0695402A

PATIENT
  Age: 69 Year
  Sex: Female

DRUGS (7)
  1. AUGMENTIN '125' [Suspect]
     Indication: SINUSITIS
     Dosage: 2TAB TWICE PER DAY
     Route: 048
     Dates: start: 20070813, end: 20070822
  2. BACTROBAN [Suspect]
     Indication: SINUSITIS
     Dosage: 1APP PER DAY
     Route: 045
     Dates: start: 20070601
  3. TRIAMTERENE AND HYDROCHLOROTHIAZIDE [Suspect]
     Indication: DRUG USE FOR UNKNOWN INDICATION
     Route: 048
  4. COUMADIN [Concomitant]
  5. DILTIAZEM [Concomitant]
  6. DILTIAZEM [Concomitant]
  7. COZAAR [Concomitant]

REACTIONS (5)
  - ABDOMINAL PAIN [None]
  - BLOOD URINE PRESENT [None]
  - DIARRHOEA [None]
  - DYSGEUSIA [None]
  - GASTRIC DISORDER [None]
